FAERS Safety Report 13396797 (Version 1)
Quarter: 2017Q2

REPORT INFORMATION
  Report Type: Spontaneous
  Country: US (occurrence: US)
  Receive Date: 20170403
  Receipt Date: 20170403
  Transmission Date: 20170830
  Serious: Yes (Disabling, Other)
  Sender: FDA-Public Use
  Company Number: None

PATIENT
  Age: 40 Year
  Sex: Female
  Weight: 52.65 kg

DRUGS (8)
  1. MIRTAZAPINE. [Suspect]
     Active Substance: MIRTAZAPINE
     Indication: ANXIETY
     Route: 048
     Dates: start: 20140201
  2. MIRTAZAPINE. [Suspect]
     Active Substance: MIRTAZAPINE
     Indication: DEPRESSION
     Route: 048
     Dates: start: 20140201
  3. GABAPENTIN. [Concomitant]
     Active Substance: GABAPENTIN
  4. FISH OIL [Concomitant]
     Active Substance: FISH OIL
  5. IRON [Concomitant]
     Active Substance: IRON
  6. MULTIVITAMIN [Concomitant]
     Active Substance: VITAMINS
  7. CALCIUM [Concomitant]
     Active Substance: CALCIUM
  8. ATIVAN [Concomitant]
     Active Substance: LORAZEPAM

REACTIONS (4)
  - Nausea [None]
  - Hyperhidrosis [None]
  - Withdrawal syndrome [None]
  - Peripheral coldness [None]

NARRATIVE: CASE EVENT DATE: 20170331
